FAERS Safety Report 8796351 (Version 3)
Quarter: 2012Q4

REPORT INFORMATION
  Report Type: 
  Country: CA (occurrence: CA)
  Receive Date: 20120919
  Receipt Date: 20121121
  Transmission Date: 20130627
  Serious: Yes (Other)
  Sender: FDA-Public Use
  Company Number: CA-BAYER-2012-094623

PATIENT
  Age: 37 Year
  Sex: Female
  Weight: 109 kg

DRUGS (1)
  1. MIRENA [Suspect]
     Dosage: 20 mcg/24hr, CONT
     Route: 015

REACTIONS (16)
  - Arthropathy [Unknown]
  - Chemical poisoning [Recovering/Resolving]
  - Depression [Unknown]
  - Disturbance in attention [Unknown]
  - Dry skin [Unknown]
  - Fatigue [Unknown]
  - Insomnia [Recovering/Resolving]
  - Myalgia [Unknown]
  - Abdominal pain lower [Recovering/Resolving]
  - Blepharospasm [Recovering/Resolving]
  - Dyspnoea [Recovering/Resolving]
  - Gallbladder pain [Recovering/Resolving]
  - Libido decreased [Recovering/Resolving]
  - Migraine [Recovering/Resolving]
  - Palpitations [Recovering/Resolving]
  - Weight increased [Recovering/Resolving]
